FAERS Safety Report 15210335 (Version 6)
Quarter: 2018Q4

REPORT INFORMATION
  Report Type: Report from Study
  Country: AU (occurrence: AU)
  Receive Date: 20180727
  Receipt Date: 20181207
  Transmission Date: 20190204
  Serious: Yes (Hospitalization, Other)
  Sender: FDA-Public Use
  Company Number: PHHY2018AU056548

PATIENT
  Age: 8 Year
  Sex: Male
  Weight: 18.7 kg

DRUGS (24)
  1. HYCAMTIN [Suspect]
     Active Substance: TOPOTECAN HYDROCHLORIDE
     Indication: NEOPLASM MALIGNANT
     Dosage: 0.6 MG/M2,  MAXIMUM DOSE (5 DAYS EVERY 21 DAYS)
     Route: 042
     Dates: start: 20180626, end: 20180630
  2. MOVICOL [Concomitant]
     Active Substance: POLYETHYLENE GLYCOL 3350\POTASSIUM CHLORIDE\SODIUM BICARBONATE\SODIUM CHLORIDE
     Indication: CONSTIPATION
     Dosage: 13.8 G, PRN
     Route: 048
     Dates: start: 20180509
  3. THYROXINE [Concomitant]
     Active Substance: LEVOTHYROXINE
     Indication: HYPOTHYROIDISM
     Dosage: 50 UG, QOD
     Route: 048
     Dates: start: 20180502
  4. OXYCODONE [Concomitant]
     Active Substance: OXYCODONE
     Indication: NEURALGIA
     Dosage: 5 MG, PRN
     Route: 048
     Dates: start: 20180328
  5. CETRIZINE [Concomitant]
     Active Substance: CETIRIZINE HYDROCHLORIDE
     Indication: PROPHYLAXIS
     Dosage: 10 MG, QD
     Route: 065
     Dates: start: 20180418
  6. CLONAZEPAM. [Concomitant]
     Active Substance: CLONAZEPAM
     Indication: ANXIETY
     Dosage: 0.1 MG, PRN
     Route: 048
     Dates: start: 20180910
  7. VENETOCLAX. [Suspect]
     Active Substance: VENETOCLAX
     Dosage: 350 MG, QD
     Route: 065
     Dates: start: 20180504, end: 20180729
  8. VENETOCLAX. [Suspect]
     Active Substance: VENETOCLAX
     Dosage: 180 MG, QD
     Route: 065
     Dates: start: 20180730
  9. PREGABALIN. [Concomitant]
     Active Substance: PREGABALIN
     Indication: NEURALGIA
     Dosage: 25 MG, BID
     Route: 048
     Dates: start: 20180411
  10. MELATONIN [Concomitant]
     Active Substance: MELATONIN
     Indication: SOMNOLENCE
     Dosage: 4 MG, QD (AT NIGHT)
     Route: 048
     Dates: start: 20180411
  11. CYCLOPHOSPHAMIDE. [Suspect]
     Active Substance: CYCLOPHOSPHAMIDE
     Indication: NEOPLASM MALIGNANT
     Dosage: 250 MG/M2, MAXIMUM DOSE (5 DAYS EVERY 21 DAYS)
     Route: 042
     Dates: start: 20180626, end: 20180630
  12. SODIUM PICOSULFATE [Concomitant]
     Active Substance: SODIUM PICOSULFATE
     Indication: CONSTIPATION
     Dosage: 5 MG, QD
     Route: 048
     Dates: start: 20180910
  13. MORPHINE SULFATE. [Concomitant]
     Active Substance: MORPHINE SULFATE
     Indication: PAIN
     Dosage: 1 ML, PRN
     Route: 042
     Dates: start: 20180717
  14. MORPHINE [Concomitant]
     Active Substance: MORPHINE
     Indication: PAIN
     Dosage: 30 MG, BID
     Route: 065
     Dates: start: 20180803
  15. HYCAMTIN [Suspect]
     Active Substance: TOPOTECAN HYDROCHLORIDE
     Dosage: 0.45 MG/M2, QD
     Route: 042
     Dates: start: 20180903, end: 20180907
  16. CYCLOPHOSPHAMIDE. [Suspect]
     Active Substance: CYCLOPHOSPHAMIDE
     Dosage: 150 MG/M2, QD
     Route: 042
     Dates: start: 20180903, end: 20180907
  17. ONDANSETRON [Concomitant]
     Active Substance: ONDANSETRON
     Indication: VOMITING
     Dosage: 15 MG, (AS REQUIRED)
     Route: 048
     Dates: start: 20170331
  18. ONDANSETRON [Concomitant]
     Active Substance: ONDANSETRON
     Indication: NAUSEA
  19. DIAZEPAM. [Concomitant]
     Active Substance: DIAZEPAM
     Indication: MUSCLE SPASMS
     Dosage: 2 MG, TID
     Route: 045
     Dates: start: 20180814
  20. VENETOCLAX. [Suspect]
     Active Substance: VENETOCLAX
     Indication: NEOPLASM MALIGNANT
     Dosage: 170 MG, QD
     Route: 065
     Dates: start: 20180503, end: 20180503
  21. TRIMETHOPRIM. [Concomitant]
     Active Substance: TRIMETHOPRIM
     Indication: ANTIFUNGAL PROPHYLAXIS
     Dosage: 10 MG, BID (SAT AND SUN)
     Route: 048
     Dates: start: 20170114
  22. CYCLIZINE [Concomitant]
     Active Substance: CYCLIZINE
     Indication: VOMITING
     Dosage: 25 MG, TID (PRN)
     Route: 048
     Dates: start: 20170331
  23. CLONIDINE. [Concomitant]
     Active Substance: CLONIDINE
     Indication: SEDATION
     Dosage: 30 MCG/ML, PRN
     Route: 065
     Dates: start: 20180813
  24. CLONAZEPAM. [Concomitant]
     Active Substance: CLONAZEPAM
     Indication: AGITATION

REACTIONS (29)
  - Febrile neutropenia [Recovered/Resolved]
  - Febrile neutropenia [Recovered/Resolved]
  - Oropharyngeal pain [Unknown]
  - Cytopenia [Unknown]
  - Arthralgia [Unknown]
  - Blood chloride decreased [Unknown]
  - Febrile neutropenia [Recovered/Resolved]
  - Eating disorder [Recovered/Resolved]
  - Rhinorrhoea [Recovered/Resolved]
  - Cough [Recovered/Resolved]
  - Epistaxis [Recovered/Resolved]
  - Faeces hard [Unknown]
  - Insomnia [Unknown]
  - Malaise [Unknown]
  - Abdominal pain [Unknown]
  - Diarrhoea [Recovered/Resolved]
  - Gamma-glutamyltransferase decreased [Unknown]
  - Urine output decreased [Recovered/Resolved]
  - Platelet count abnormal [Recovered/Resolved]
  - Headache [Recovered/Resolved]
  - Candida infection [Unknown]
  - Respiratory rate increased [Unknown]
  - Lethargy [Unknown]
  - Nausea [Unknown]
  - Blood pressure decreased [Unknown]
  - Heart rate increased [Unknown]
  - Decreased appetite [Unknown]
  - Bone pain [Unknown]
  - Pyrexia [Unknown]

NARRATIVE: CASE EVENT DATE: 20180704
